FAERS Safety Report 15472848 (Version 6)
Quarter: 2019Q3

REPORT INFORMATION
  Report Type: Spontaneous
  Country: US (occurrence: US)
  Receive Date: 20181008
  Receipt Date: 20190715
  Transmission Date: 20191004
  Serious: No
  Sender: FDA-Public Use
  Company Number: US-PFIZER INC-2018401322

PATIENT
  Age: 54 Year
  Sex: Female
  Weight: 57.6 kg

DRUGS (3)
  1. LYRICA [Suspect]
     Active Substance: PREGABALIN
     Indication: FIBROMYALGIA
     Dosage: 150 MG, 2X/DAY
  2. LYRICA [Suspect]
     Active Substance: PREGABALIN
     Dosage: 150 MG, UNK
  3. LYRICA [Suspect]
     Active Substance: PREGABALIN
     Dosage: 75 MG, 2X/DAY
     Route: 048
     Dates: start: 201806

REACTIONS (6)
  - Stress [Unknown]
  - Intentional product misuse [Unknown]
  - Malaise [Unknown]
  - Poor quality product administered [Unknown]
  - Drug withdrawal syndrome [Unknown]
  - Product quality issue [Unknown]

NARRATIVE: CASE EVENT DATE: 201906
